FAERS Safety Report 9598706 (Version 1)
Quarter: 2013Q4

REPORT INFORMATION
  Report Type: Spontaneous
  Country: US (occurrence: US)
  Receive Date: 20131004
  Receipt Date: 20131004
  Transmission Date: 20140711
  Serious: No
  Sender: FDA-Public Use
  Company Number: US-AMGEN-USASP2013025490

PATIENT
  Age: 66 Year
  Sex: Female

DRUGS (7)
  1. ENBREL [Suspect]
     Indication: PRODUCT USED FOR UNKNOWN INDICATION
     Dosage: 50 MG, QWK
     Route: 058
  2. LEVOTHYROXIN [Concomitant]
     Dosage: 112 MUG, UNK
  3. TRIAMCINOLONE [Concomitant]
     Dosage: 55 MUG, UNK (MCG/AC) SPR
  4. LISINOPRIL [Concomitant]
     Dosage: 2.5 MG, UNK
  5. CALCIUM D3+K1 [Concomitant]
     Dosage: 750 MG, UNK
  6. ZYRTEC [Concomitant]
     Dosage: 10 MG, UNK
  7. PRAVASTATIN [Concomitant]
     Dosage: 10 MG, UNK

REACTIONS (1)
  - Injection site pain [Unknown]
